FAERS Safety Report 24280391 (Version 1)
Quarter: 2024Q3

REPORT INFORMATION
  Report Type: Spontaneous
  Country: US (occurrence: US)
  Receive Date: 20240904
  Receipt Date: 20240904
  Transmission Date: 20241017
  Serious: Yes (Death)
  Sender: AMGEN
  Company Number: US-AMGEN-USASP2024174596

PATIENT
  Age: 61 Year
  Sex: Female

DRUGS (2)
  1. TEPEZZA [Suspect]
     Active Substance: TEPROTUMUMAB-TRBW
     Indication: Toxic goitre
     Dosage: 816 MILLIGRAM, Q3WK, (WEEK 0: 816MG PIV X1 DOSE)
     Route: 042
     Dates: start: 20240417
  2. TEPEZZA [Suspect]
     Active Substance: TEPROTUMUMAB-TRBW
     Dosage: 1632 MILLIGRAM, Q3WK, (WEEK 3: 1632MG PIV Q3WK X 7 DOSES)
     Route: 042
     Dates: start: 2024

REACTIONS (2)
  - Death [Fatal]
  - Off label use [Unknown]

NARRATIVE: CASE EVENT DATE: 20240417
